FAERS Safety Report 9095075 (Version 1)
Quarter: 2013Q1

REPORT INFORMATION
  Report Type: Spontaneous
  Country: US (occurrence: None)
  Receive Date: 20130123
  Receipt Date: 20130123
  Transmission Date: 20140127
  Serious: Yes (Other)
  Sender: FDA-Public Use
  Company Number: B0860115A

PATIENT
  Age: 42 Year
  Sex: Female

DRUGS (4)
  1. ZOFRAN [Suspect]
     Indication: PRODUCT USED FOR UNKNOWN INDICATION
  2. QUETIAPINE [Suspect]
     Indication: DEPRESSION
  3. CITALOPRAM (FORMULATION UNKNOWN) (CITALOPRAM) [Suspect]
     Indication: DEPRESSION
  4. AMPHETAMINE [Suspect]

REACTIONS (8)
  - Serotonin syndrome [None]
  - Clonus [None]
  - Pyrexia [None]
  - Agitation [None]
  - Restlessness [None]
  - Blood pressure fluctuation [None]
  - Muscle rigidity [None]
  - Altered state of consciousness [None]
